FAERS Safety Report 8901909 (Version 1)
Quarter: 2012Q4

REPORT INFORMATION
  Report Type: Spontaneous
  Country: US (occurrence: None)
  Receive Date: 20121109
  Receipt Date: 20121109
  Transmission Date: 20130627
  Serious: Yes (Hospitalization, Other)
  Sender: FDA-Public Use
  Company Number: None

PATIENT
  Age: 24 Year
  Sex: Female
  Weight: 65.9 kg

DRUGS (1)
  1. FEMARA [Suspect]
     Indication: ENDOMETRIOSIS
     Dosage: 2.5 MG Once daily Oral
     Route: 048
     Dates: start: 2008

REACTIONS (5)
  - Vertigo [None]
  - Eye disorder [None]
  - Uterine polyp [None]
  - Fall [None]
  - Visual impairment [None]
